FAERS Safety Report 6525398-X (Version None)
Quarter: 2010Q1

REPORT INFORMATION
  Report Type: 
  Country: None (occurrence: None)
  Receive Date: 20100104
  Receipt Date: 20091222
  Transmission Date: 20100710
  Serious: Yes (Other)
  Sender: FDA-Public Use
  Company Number: GB-ELI_LILLY_AND_COMPANY-GB200912004969

PATIENT
  Age: 16 Year
  Sex: Male
  Weight: 61.9 kg

DRUGS (3)
  1. ZYPREXA [Suspect]
     Indication: AGITATION
     Dosage: 2.5 MG, DAILY (1/D)
     Route: 065
     Dates: start: 20091211, end: 20091211
  2. CLONAZEPAM [Concomitant]
     Indication: AGITATION
     Dosage: 0.5 MG, DAILY (1/D)
     Route: 065
     Dates: start: 20091211, end: 20091211
  3. RISPERIDONE [Concomitant]
     Dosage: 4 MG, UNKNOWN
     Route: 065

REACTIONS (7)
  - ABDOMINAL PAIN UPPER [None]
  - HALLUCINATION, VISUAL [None]
  - HEADACHE [None]
  - NAUSEA [None]
  - OXYGEN SATURATION DECREASED [None]
  - SEDATION [None]
  - VOMITING [None]
